FAERS Safety Report 5117926-6 (Version None)
Quarter: 2006Q3

REPORT INFORMATION
  Report Type: 
  Country: None (occurrence: None)
  Receive Date: 20060929
  Receipt Date: 20060921
  Transmission Date: 20061208
  Serious: Yes (Disabling)
  Sender: FDA-Public Use
  Company Number: 2006AC01764

PATIENT
  Sex: Male

DRUGS (5)
  1. CRESTOR [Suspect]
     Indication: HYPERCHOLESTEROLAEMIA
     Route: 048
     Dates: start: 20060101, end: 20060601
  2. CRESTOR [Suspect]
     Route: 048
     Dates: start: 20060901
  3. MESTINON [Concomitant]
  4. PLAVIX [Concomitant]
  5. KINZAL [Concomitant]

REACTIONS (5)
  - APHONIA [None]
  - EATON-LAMBERT SYNDROME [None]
  - FATIGUE [None]
  - MUSCULAR WEAKNESS [None]
  - VERTIGO [None]
